FAERS Safety Report 4989201-1 (Version None)
Quarter: 2006Q2

REPORT INFORMATION
  Report Type: 
  Country: None (occurrence: None)
  Receive Date: 20060425
  Receipt Date: 20060413
  Transmission Date: 20061013
  Serious: Yes (Other)
  Sender: FDA-Public Use
  Company Number: GXKR2006US02070

PATIENT
  Age: 41 Year
  Sex: Female

DRUGS (1)
  1. WARFARIN SODIUM [Suspect]
     Indication: DEEP VEIN THROMBOSIS

REACTIONS (11)
  - BLINDNESS [None]
  - CONJUNCTIVAL OEDEMA [None]
  - ECCHYMOSIS [None]
  - EXOPHTHALMOS [None]
  - EYE HAEMORRHAGE [None]
  - EYELID OEDEMA [None]
  - HEADACHE [None]
  - INTERNATIONAL NORMALISED RATIO INCREASED [None]
  - INTRAOCULAR PRESSURE INCREASED [None]
  - PUPILLARY REFLEX IMPAIRED [None]
  - RETINAL ARTERY OCCLUSION [None]
